FAERS Safety Report 22184886 (Version 1)
Quarter: 2023Q2

REPORT INFORMATION
  Report Type: Spontaneous
  Country: SI (occurrence: SI)
  Receive Date: 20230407
  Receipt Date: 20230407
  Transmission Date: 20230722
  Serious: Yes (Hospitalization)
  Sender: FDA-Public Use
  Company Number: SI-BAYER-2021A236665

PATIENT
  Age: 82 Year
  Sex: Female

DRUGS (8)
  1. XARELTO [Suspect]
     Active Substance: RIVAROXABAN
     Indication: Atrial fibrillation
     Dosage: 15 MG, QD
     Route: 048
  2. VALSARTAN [Concomitant]
     Active Substance: VALSARTAN
     Dosage: 40 MG/IN THE MORNING
  3. PANTOPRAZOLE [Concomitant]
     Active Substance: PANTOPRAZOLE
     Dosage: 40 MG/IN THE MORNING
  4. BISOPROLOL [Concomitant]
     Active Substance: BISOPROLOL
     Dosage: 5 MG/IN THE MORNING + 2.5 MG/IN THE EVENING
  5. ATORVASTATIN [Concomitant]
     Active Substance: ATORVASTATIN
     Dosage: 20 MG/IN THE EVENING
  6. FUROSEMIDE [Concomitant]
     Active Substance: FUROSEMIDE
     Dosage: 20 MG/IN THE MORNING
  7. INSULIN NOS [Concomitant]
     Active Substance: INSULIN NOS
     Dosage: AS PER THE BLOOD TEST PROFILE
  8. VITAMIN D3 [Concomitant]
     Active Substance: CHOLECALCIFEROL
     Dosage: 35 GTT/WEEK

REACTIONS (2)
  - Atrial fibrillation [Unknown]
  - Cardiac failure [Unknown]
